FAERS Safety Report 7933258-2 (Version None)
Quarter: 2011Q4

REPORT INFORMATION
  Report Type: 
  Country: None (occurrence: None)
  Receive Date: 20111122
  Receipt Date: 20111116
  Transmission Date: 20120403
  Serious: Yes (Death)
  Sender: FDA-Public Use
  Company Number: JP-SANOFI-AVENTIS-2011SA076144

PATIENT

DRUGS (3)
  1. CISPLATIN [Suspect]
     Indication: NON-SMALL CELL LUNG CANCER METASTATIC
     Dosage: DOSE: 25 MG/M2 ON DAYS 1, 8, AND 15 OF 4-WEEK CYCLE
     Route: 065
  2. DOCETAXEL [Suspect]
     Dosage: DOSE: 60 MG/M2 ON DAY 1 OF 3-WEEK CYCLE
     Route: 065
  3. DOCETAXEL [Suspect]
     Indication: NON-SMALL CELL LUNG CANCER METASTATIC
     Dosage: DOSE: 60 MG/M2 ON DAY 1 OF 3-WEEK CYCLE
     Route: 065

REACTIONS (6)
  - NEUTROPENIA [None]
  - FEBRILE NEUTROPENIA [None]
  - DEATH [None]
  - ANAEMIA [None]
  - PNEUMONITIS [None]
  - DECREASED APPETITE [None]
